FAERS Safety Report 4307204-7 (Version None)
Quarter: 2004Q1

REPORT INFORMATION
  Report Type: 
  Country: None (occurrence: None)
  Receive Date: 20040225
  Receipt Date: 20040219
  Transmission Date: 20041129
  Serious: No
  Sender: FDA-Public Use
  Company Number: 2004UW00020

PATIENT
  Age: 81 Year
  Sex: Male
  Weight: 72.5755 kg

DRUGS (3)
  1. IRESSA [Suspect]
     Indication: NON-SMALL CELL LUNG CANCER
     Dosage: 250 MG PO
     Route: 048
     Dates: start: 20031028
  2. CHILDREN'S ASPIRIN [Concomitant]
  3. MULTI-VITAMIN [Concomitant]

REACTIONS (3)
  - DIARRHOEA [None]
  - HICCUPS [None]
  - RASH [None]
